FAERS Safety Report 10910909 (Version 2)
Quarter: 2015Q2

REPORT INFORMATION
  Report Type: Spontaneous
  Country: US (occurrence: US)
  Receive Date: 20150312
  Receipt Date: 20150604
  Transmission Date: 20150821
  Serious: Yes (Death, Hospitalization, Other)
  Sender: FDA-Public Use
  Company Number: PHEH2015US004788

PATIENT
  Age: 30 Year
  Sex: Male

DRUGS (19)
  1. GILENYA [Suspect]
     Active Substance: FINGOLIMOD HYDROCHLORIDE
     Indication: RELAPSING-REMITTING MULTIPLE SCLEROSIS
     Dosage: 0.5 MG, QD
     Route: 048
     Dates: start: 20140301
  2. CLONAZEPAM. [Concomitant]
     Active Substance: CLONAZEPAM
     Dosage: 0.5 MG, TID (AS PER NEED)
     Route: 065
  3. WELLBUTRIN SR [Concomitant]
     Active Substance: BUPROPION HYDROCHLORIDE
     Indication: ANXIETY
     Dosage: UNK (150)
     Route: 065
     Dates: start: 201409
  4. KLONOPIN [Concomitant]
     Active Substance: CLONAZEPAM
     Indication: ANXIETY
  5. SEROQUEL [Concomitant]
     Active Substance: QUETIAPINE FUMARATE
     Indication: MOOD ALTERED
     Dosage: 300 MG, QHS
     Route: 065
  6. LEXAPRO [Concomitant]
     Active Substance: ESCITALOPRAM OXALATE
     Indication: ANXIETY
     Dosage: 10 MG, QD
     Route: 065
  7. CLONAZEPAM. [Concomitant]
     Active Substance: CLONAZEPAM
     Dosage: 2 MG, QID
     Route: 065
  8. ZOLOFT [Concomitant]
     Active Substance: SERTRALINE HYDROCHLORIDE
     Indication: ANXIETY
     Dosage: 100 MG, QHS
     Route: 065
  9. SEROQUEL [Concomitant]
     Active Substance: QUETIAPINE FUMARATE
     Indication: SLEEP DISORDER
     Dosage: 200 MG, QHS
     Route: 065
  10. TRAZODONE [Concomitant]
     Active Substance: TRAZODONE HYDROCHLORIDE
     Dosage: 250 MG, QHS
     Route: 065
  11. TRAZODONE [Concomitant]
     Active Substance: TRAZODONE HYDROCHLORIDE
     Dosage: 150 MG, QHS
     Route: 065
  12. WELLBUTRIN SR [Concomitant]
     Active Substance: BUPROPION HYDROCHLORIDE
     Indication: DEPRESSION
     Dosage: UNK, QD (300)
     Route: 065
  13. KLONOPIN [Concomitant]
     Active Substance: CLONAZEPAM
     Indication: DEPRESSION
     Dosage: 1 MG, QID
     Route: 065
  14. LEXAPRO [Concomitant]
     Active Substance: ESCITALOPRAM OXALATE
     Dosage: 30 MG, QD
     Route: 065
  15. CLONAZEPAM. [Concomitant]
     Active Substance: CLONAZEPAM
     Indication: ANXIETY
     Dosage: 0.5 MG, UNK (TWO TO THREE TIMES DAILY)
     Route: 065
  16. CLONAZEPAM. [Concomitant]
     Active Substance: CLONAZEPAM
     Dosage: 1 MG, BID
     Route: 065
  17. ZOLOFT [Concomitant]
     Active Substance: SERTRALINE HYDROCHLORIDE
     Indication: DEPRESSION
  18. LEXAPRO [Concomitant]
     Active Substance: ESCITALOPRAM OXALATE
     Dosage: 20 MG, QD
     Route: 065
  19. TRAZODONE [Concomitant]
     Active Substance: TRAZODONE HYDROCHLORIDE
     Indication: SLEEP DISORDER
     Dosage: 200 MG, QHS
     Route: 065

REACTIONS (51)
  - Fall [Unknown]
  - Poor quality sleep [Unknown]
  - Asthenia [Unknown]
  - Migraine [Unknown]
  - Optic disc disorder [Unknown]
  - Musculoskeletal discomfort [Unknown]
  - Feeling of despair [Unknown]
  - Blepharospasm [Unknown]
  - Stress [Unknown]
  - Hypertonia [Unknown]
  - Rotator cuff syndrome [Unknown]
  - Cough [Unknown]
  - Blood pressure systolic increased [Unknown]
  - Paraesthesia [Unknown]
  - Intervertebral disc protrusion [Unknown]
  - Balance disorder [Unknown]
  - Muscle strain [Unknown]
  - Depressed mood [Unknown]
  - Sexual dysfunction [Unknown]
  - Completed suicide [Fatal]
  - Eye pain [Unknown]
  - Multiple sclerosis relapse [Unknown]
  - Romberg test positive [Unknown]
  - Depression [Unknown]
  - Fatigue [Unknown]
  - Hypersensitivity [Unknown]
  - Vision blurred [Unknown]
  - Gait disturbance [Unknown]
  - Extensor plantar response [Unknown]
  - Sensory disturbance [Unknown]
  - Insomnia [Unknown]
  - Micturition urgency [Unknown]
  - Urticaria [Unknown]
  - Intentional overdose [Fatal]
  - Optic neuritis [Unknown]
  - Mental impairment [Unknown]
  - Tremor [Unknown]
  - Ligament sprain [Unknown]
  - Irritability [Unknown]
  - Ejaculation delayed [Unknown]
  - Memory impairment [Unknown]
  - Tension headache [Unknown]
  - Central nervous system lesion [Unknown]
  - Intention tremor [Unknown]
  - Ataxia [Recovered/Resolved]
  - Musculoskeletal pain [Unknown]
  - Anxiety [Unknown]
  - Limb discomfort [Unknown]
  - Weight decreased [Unknown]
  - Headache [Recovered/Resolved]
  - Migraine [Recovered/Resolved]

NARRATIVE: CASE EVENT DATE: 201403
